FAERS Safety Report 9746830 (Version 2)
Quarter: 2014Q1

REPORT INFORMATION
  Report Type: Spontaneous
  Country: US (occurrence: US)
  Receive Date: 20131211
  Receipt Date: 20140311
  Transmission Date: 20141002
  Serious: Yes (Death, Hospitalization)
  Sender: FDA-Public Use
  Company Number: US-BAXTER-2013BAX049015

PATIENT
  Age: 91 Year
  Sex: Male

DRUGS (7)
  1. DIANEAL LOW CALCIUM [Suspect]
     Indication: PERITONEAL DIALYSIS
     Dosage: 1 BAG
     Route: 033
     Dates: end: 20140228
  2. DIANEAL LOW CALCIUM [Suspect]
     Indication: RENAL FAILURE CHRONIC
  3. DIANEAL LOW CALCIUM [Suspect]
     Indication: PERITONEAL DIALYSIS
     Dosage: 1 BAG
     Route: 033
     Dates: end: 20140228
  4. DIANEAL LOW CALCIUM [Suspect]
     Indication: RENAL FAILURE CHRONIC
  5. DIANEAL LOW CALCIUM (ULTRABAG) [Suspect]
     Indication: RENAL FAILURE CHRONIC
     Route: 033
  6. EXTRANEAL [Suspect]
     Indication: PERITONEAL DIALYSIS
     Dosage: 1 BAG
     Route: 033
     Dates: end: 20140228
  7. EXTRANEAL [Suspect]
     Indication: RENAL FAILURE CHRONIC

REACTIONS (4)
  - Malnutrition [Fatal]
  - Colitis [Not Recovered/Not Resolved]
  - Hypokalaemia [Not Recovered/Not Resolved]
  - Peritoneal dialysis complication [Recovering/Resolving]
